FAERS Safety Report 4278101-0 (Version None)
Quarter: 2004Q1

REPORT INFORMATION
  Report Type: 
  Country: None (occurrence: None)
  Receive Date: 20040120
  Receipt Date: 20040105
  Transmission Date: 20041129
  Serious: Yes (Hospitalization)
  Sender: FDA-Public Use
  Company Number: 189807

PATIENT
  Age: 56 Year
  Sex: Female
  Weight: 42.6381 kg

DRUGS (6)
  1. AVONEX [Suspect]
     Indication: MULTIPLE SCLEROSIS
     Dosage: 30 MCG QW; IM
     Route: 030
     Dates: start: 19960101
  2. AVONEX [Suspect]
     Indication: MULTIPLE SCLEROSIS
     Dosage: 30 MCG QW; IM
     Route: 030
     Dates: start: 20000101, end: 20031001
  3. AVONEX [Suspect]
     Indication: MULTIPLE SCLEROSIS
     Dosage: 30 MCG QW; IM
     Route: 030
     Dates: start: 20031001
  4. MEDICATION FOR MUSCLE SPASMS (NOS) [Concomitant]
  5. DANTRIUM [Concomitant]
  6. VITAMINS NOS [Concomitant]

REACTIONS (3)
  - AMNESIA [None]
  - INTRACRANIAL ANEURYSM [None]
  - VISUAL DISTURBANCE [None]
